FAERS Safety Report 15550821 (Version 1)
Quarter: 2018Q4

REPORT INFORMATION
  Report Type: Spontaneous
  Country: US (occurrence: US)
  Receive Date: 20181025
  Receipt Date: 20181025
  Transmission Date: 20190205
  Serious: No
  Sender: FDA-Public Use
  Company Number: US-MISSION PHARMACAL COMPANY-2057949

PATIENT
  Age: 67 Year
  Sex: Male

DRUGS (1)
  1. LITHOSTAT [Suspect]
     Active Substance: ACETOHYDROXAMIC ACID
     Indication: NEPHROLITHIASIS
     Route: 048
     Dates: start: 20180912, end: 20180913

REACTIONS (3)
  - Dizziness [Recovered/Resolved]
  - Fear of falling [Recovered/Resolved]
  - Nausea [Recovered/Resolved]
